FAERS Safety Report 8315517-7 (Version None)
Quarter: 2012Q2

REPORT INFORMATION
  Report Type: 
  Country: None (occurrence: None)
  Receive Date: 20120426
  Receipt Date: 20120417
  Transmission Date: 20120825
  Serious: Yes (Hospitalization)
  Sender: FDA-Public Use
  Company Number: US-MILLENNIUM PHARMACEUTICALS, INC.-2012-02649

PATIENT
  Age: 51 Year
  Sex: Male

DRUGS (3)
  1. VELCADE [Suspect]
     Indication: MULTIPLE MYELOMA
     Dosage: 3.5 MG, 1/WEEK
     Route: 040
     Dates: start: 20110329, end: 20111213
  2. CYTOXAN [Suspect]
     Indication: MULTIPLE MYELOMA
     Dosage: 900 MG, 1/WEEK
     Route: 042
     Dates: start: 20110329, end: 20111213
  3. DECADRON [Suspect]
     Indication: MULTIPLE MYELOMA
     Dosage: 40 MG, 1/WEEK
     Route: 048
     Dates: start: 20110329, end: 20111213

REACTIONS (7)
  - NEUROPATHY PERIPHERAL [None]
  - MUSCULOSKELETAL PAIN [None]
  - FALL [None]
  - OSTEOARTHRITIS [None]
  - PARAESTHESIA [None]
  - OBESITY [None]
  - PERONEAL NERVE PALSY [None]
